FAERS Safety Report 8847950 (Version 1)
Quarter: 2012Q4

REPORT INFORMATION
  Report Type: Report from Study
  Country: BR (occurrence: BR)
  Receive Date: 20121018
  Receipt Date: 20121018
  Transmission Date: 20130627
  Serious: Yes (Other)
  Sender: FDA-Public Use
  Company Number: BR-ROCHE-1146532

PATIENT
  Age: 65 Year
  Sex: Female
  Weight: 80 kg

DRUGS (6)
  1. BEVACIZUMAB [Suspect]
     Indication: COLORECTAL CANCER
     Route: 065
     Dates: start: 20111226, end: 20120702
  2. BEVACIZUMAB [Suspect]
     Route: 065
     Dates: start: 20120730, end: 20120903
  3. CAPECITABINE [Suspect]
     Indication: COLORECTAL CANCER
     Route: 065
     Dates: start: 20120730, end: 20120903
  4. IRINOTECAN [Concomitant]
     Route: 065
     Dates: start: 20111226, end: 20120702
  5. FLUOROURACIL [Concomitant]
     Route: 065
     Dates: start: 20111226, end: 20120702
  6. OXALIPLATIN [Concomitant]
     Route: 065
     Dates: start: 20121001

REACTIONS (1)
  - Disease progression [Unknown]
